FAERS Safety Report 10264241 (Version 1)
Quarter: 2014Q2

REPORT INFORMATION
  Report Type: Spontaneous
  Country: FR (occurrence: FR)
  Receive Date: 20140627
  Receipt Date: 20140627
  Transmission Date: 20141212
  Serious: Yes (Other)
  Sender: FDA-Public Use
  Company Number: FR-ASTRAZENECA-2014SE46368

PATIENT
  Age: 71 Year
  Sex: Male

DRUGS (4)
  1. CRESTOR [Suspect]
     Indication: PROPHYLAXIS
     Route: 048
     Dates: end: 201305
  2. KEAL [Suspect]
     Indication: OESOPHAGEAL ADENOCARCINOMA
     Dosage: FOUR TIMES A DAY
     Route: 065
     Dates: end: 201305
  3. SINEMET [Concomitant]
     Indication: PARKINSONISM
  4. STALEVO [Concomitant]
     Indication: PARKINSONISM

REACTIONS (4)
  - Neuropathy peripheral [Recovering/Resolving]
  - Weight decreased [Unknown]
  - Blood creatine phosphokinase increased [Unknown]
  - Myalgia [Unknown]
